FAERS Safety Report 4658427-9 (Version None)
Quarter: 2005Q2

REPORT INFORMATION
  Report Type: 
  Country: None (occurrence: None)
  Receive Date: 20050510
  Receipt Date: 20050510
  Transmission Date: 20051028
  Serious: No
  Sender: FDA-Public Use
  Company Number: None

PATIENT
  Sex: Female

DRUGS (9)
  1. MEGACE [Suspect]
     Dosage: 400 MG TWICE DAILY
  2. ALDACTON [Concomitant]
  3. ALTACE [Concomitant]
  4. DEPAKENE [Concomitant]
  5. GLUCOPHAGE [Concomitant]
  6. SENOKOT [Concomitant]
  7. SYNTHROID [Concomitant]
  8. ZOCOR [Concomitant]
  9. ZYPREXA [Concomitant]

REACTIONS (1)
  - VAGINAL HAEMORRHAGE [None]
